FAERS Safety Report 8377812-5 (Version None)
Quarter: 2012Q2

REPORT INFORMATION
  Report Type: 
  Country: None (occurrence: None)
  Receive Date: 20120522
  Receipt Date: 20120515
  Transmission Date: 20120825
  Serious: Yes (Other)
  Sender: FDA-Public Use
  Company Number: US-PFIZER INC-2012093328

PATIENT
  Sex: Female
  Weight: 46 kg

DRUGS (8)
  1. SUTENT [Suspect]
     Indication: METASTATIC RENAL CELL CARCINOMA
     Dosage: 50 MG, 1X/DAY CYCLE 4 WEEKS ON AND 2 OFF
     Dates: start: 20120329, end: 20120101
  2. CALCIUM [Concomitant]
     Dosage: UNK
  3. TRAZODONE [Concomitant]
     Dosage: UNK
  4. SUTENT [Suspect]
     Dosage: 50MG THAT DAY AND ALTERNATE EVERY OTHER DAY WITH 25MG WHICH SHE WAS TAKING TODAY, UNTIL 28 DAYS
     Dates: start: 20120514
  5. PREVACID [Concomitant]
     Dosage: UNK
  6. VITAMIN D [Concomitant]
     Dosage: UNK
  7. TRAMADOL [Concomitant]
     Indication: INCISION SITE PAIN
     Dosage: UNK
  8. TRAMADOL [Concomitant]
     Indication: ARTHRITIS

REACTIONS (14)
  - PLATELET COUNT DECREASED [None]
  - SKIN EXFOLIATION [None]
  - STOMATITIS [None]
  - WHITE BLOOD CELL COUNT DECREASED [None]
  - HEADACHE [None]
  - HAEMOGLOBIN DECREASED [None]
  - HYPERKERATOSIS [None]
  - WEIGHT DECREASED [None]
  - DYSGEUSIA [None]
  - ORAL PAIN [None]
  - BLISTER [None]
  - PALMAR-PLANTAR ERYTHRODYSAESTHESIA SYNDROME [None]
  - CROHN'S DISEASE [None]
  - FATIGUE [None]
